FAERS Safety Report 17195759 (Version 2)
Quarter: 2019Q4

REPORT INFORMATION
  Report Type: Report from Study
  Country: IT (occurrence: IT)
  Receive Date: 20191224
  Receipt Date: 20191227
  Transmission Date: 20200122
  Serious: Yes (Hospitalization)
  Sender: FDA-Public Use
  Company Number: IT-BAUSCH-BL-2019-056963

PATIENT
  Age: 78 Year
  Sex: Female

DRUGS (3)
  1. VISUMIDRIATIC [Concomitant]
     Active Substance: TROPICAMIDE
     Indication: CATARACT
     Route: 031
     Dates: start: 20190923
  2. BETABIOPTAL [Concomitant]
     Indication: CATARACT
     Dosage: 2 MG/ML PLUS 5 MG/ML
     Route: 047
     Dates: start: 20190923
  3. CARTEOLOL HYDROCHLORIDE. [Suspect]
     Active Substance: CARTEOLOL HYDROCHLORIDE
     Indication: CATARACT
     Route: 047
     Dates: start: 20190923, end: 20190924

REACTIONS (3)
  - Dyspepsia [Recovering/Resolving]
  - Bradycardia [Recovering/Resolving]
  - Hypotension [Recovering/Resolving]

NARRATIVE: CASE EVENT DATE: 20190924
